FAERS Safety Report 7767947-X (Version None)
Quarter: 2011Q3

REPORT INFORMATION
  Report Type: 
  Country: None (occurrence: None)
  Receive Date: 20110922
  Receipt Date: 20100830
  Transmission Date: 20111222
  Serious: Yes (Other)
  Sender: FDA-Public Use
  Company Number: US-ASTRAZENECA-2008UW04633

PATIENT
  Age: 17569 Day
  Sex: Female
  Weight: 111.1 kg

DRUGS (32)
  1. ALBUTEROL [Concomitant]
     Dosage: 90 MCG EVERY 4 TO 6 HOURS AS REQUIRED
     Route: 055
     Dates: start: 20010131
  2. HYDROCHLOROTHIAZIDE [Concomitant]
     Route: 048
     Dates: start: 20010131
  3. FELODIPINE [Concomitant]
     Indication: HYPERLIPIDAEMIA
     Route: 048
     Dates: start: 20061107
  4. SALMETEROL/ SEREVENT DISKUS [Concomitant]
     Dosage: 50 MCG EVERY 12 HOUR
     Route: 055
     Dates: start: 20061107
  5. ASPIRIN [Concomitant]
     Dosage: 81 MG TO 325 MG
     Route: 048
     Dates: start: 20010615
  6. SEROQUEL [Suspect]
     Dosage: 25 TO 50MG
     Route: 048
     Dates: start: 20030319, end: 20040105
  7. HALOPERIDOL [Concomitant]
     Dosage: 5 MG DISPENSED
     Route: 048
     Dates: start: 20000111
  8. PREDNISONE [Concomitant]
     Dosage: 20 MG TO 50 MG DISPENSED
     Route: 048
     Dates: start: 20010131
  9. LISINOPRIL [Concomitant]
     Dosage: 5 MG TO 40 MG
     Dates: start: 20000613
  10. METFORMIN/ METFORMIN HCL [Concomitant]
     Route: 048
     Dates: start: 20061107
  11. MICONAZOLE [Concomitant]
     Indication: VULVOVAGINAL MYCOTIC INFECTION
     Dosage: 2 PERCENT APPLY TWICE DAILY
     Dates: start: 20061107
  12. SEROQUEL [Suspect]
     Indication: DEPRESSION
     Dosage: 25MG TO 50MG
     Route: 048
     Dates: start: 20020601, end: 20070101
  13. AMBIEN [Concomitant]
     Indication: INSOMNIA
     Route: 048
     Dates: start: 20050122
  14. LANTUS [Concomitant]
     Dosage: 30 UNITS AT BEDTIME
     Route: 058
     Dates: start: 20061107
  15. LASIX [Concomitant]
     Route: 048
     Dates: start: 20010113, end: 20061207
  16. BENZTROPINE MESYLATE [Concomitant]
     Dosage: 1 MG DISPENSED
     Route: 048
     Dates: start: 20000111
  17. WELLBUTRIN [Concomitant]
  18. PROZAC [Concomitant]
     Dates: start: 20000111
  19. RISPERDAL [Concomitant]
     Route: 048
     Dates: start: 20000111
  20. ATROVENT [Concomitant]
     Dosage: 0.2 MG/ML SOLUTION
     Dates: start: 20000318
  21. DIAZEPAM [Concomitant]
     Dosage: 5 MG DISPENSED
     Route: 048
     Dates: start: 20010131
  22. NITROGLYCERIN [Concomitant]
     Dosage: 0.4 MG DISPENSED
     Route: 060
     Dates: start: 20030422
  23. FLOVENT [Concomitant]
     Dosage: 110 MCG EVERY 12 HOUR
     Route: 055
     Dates: start: 20030423
  24. FELODIPINE [Concomitant]
     Indication: BLOOD CHOLESTEROL INCREASED
     Route: 048
     Dates: start: 20061107
  25. GEBAPENTIN / NEURONTIN [Concomitant]
     Route: 048
     Dates: start: 20000111
  26. LORAZEPAM [Concomitant]
     Dosage: 1 MG DISPENSED
     Route: 048
     Dates: start: 20000111
  27. THORAZINE [Concomitant]
     Dates: start: 19730101
  28. PROVENTIL/ALBUTEROL SULPHATE [Concomitant]
     Dosage: 0.83 MG/ML SOLUTION 2 PUFFS EVERY 4 HOURS AS REQUIRED
     Route: 055
     Dates: start: 20000111
  29. ZOCOR [Concomitant]
     Route: 048
     Dates: start: 20050530
  30. REGULAR INSULIN [Concomitant]
     Dosage: 100 U/ML SS, 10 UNITS BEFORE MEAL AND AT NIGHT
     Route: 058
     Dates: start: 20050530
  31. NITROGLYCERIN [Concomitant]
     Indication: CHEST PAIN
     Dosage: 0.5 SUBLINGUAL EVERY 5 MINS AS NEEDED
     Route: 060
     Dates: start: 20061107
  32. AZMACORT [Concomitant]
     Dosage: 2 PUFF EVERY 6 HOURS
     Dates: start: 20000317

REACTIONS (7)
  - HYPERGLYCAEMIA [None]
  - DIABETES MELLITUS INADEQUATE CONTROL [None]
  - BLOOD CHOLESTEROL INCREASED [None]
  - OBESITY [None]
  - TYPE 2 DIABETES MELLITUS [None]
  - HYPERLIPIDAEMIA [None]
  - DIABETIC COMPLICATION [None]
